FAERS Safety Report 19517625 (Version 3)
Quarter: 2021Q3

REPORT INFORMATION
  Report Type: Spontaneous
  Country: US (occurrence: US)
  Receive Date: 20210712
  Receipt Date: 20210906
  Transmission Date: 20211014
  Serious: Yes (Other)
  Sender: FDA-Public Use
  Company Number: US-BEH-2021133810

PATIENT
  Age: 52 Year
  Sex: Female

DRUGS (5)
  1. HIZENTRA [Suspect]
     Active Substance: HUMAN IMMUNOGLOBULIN G
     Dosage: 7 GRAM, QW
     Route: 058
     Dates: start: 202106
  2. HIZENTRA [Suspect]
     Active Substance: HUMAN IMMUNOGLOBULIN G
     Indication: IMMUNODEFICIENCY COMMON VARIABLE
     Dosage: 6 GRAM, QW
     Route: 058
     Dates: start: 20210301
  3. HIZENTRA [Suspect]
     Active Substance: HUMAN IMMUNOGLOBULIN G
     Indication: ASTHMA
     Dosage: 1 GRAM, QW
     Route: 058
     Dates: start: 20210301
  4. NUCALA [Concomitant]
     Active Substance: MEPOLIZUMAB
  5. HIZENTRA [Suspect]
     Active Substance: HUMAN IMMUNOGLOBULIN G
     Indication: PRIMARY IMMUNODEFICIENCY SYNDROME
     Dosage: 7 GRAM, QW
     Route: 058
     Dates: start: 20210512

REACTIONS (6)
  - Pneumonia [Unknown]
  - Pruritus [Unknown]
  - Incorrect dose administered [Unknown]
  - Off label use [Unknown]
  - Ill-defined disorder [Unknown]
  - No adverse event [Unknown]

NARRATIVE: CASE EVENT DATE: 2021
